FAERS Safety Report 5800979-7 (Version None)
Quarter: 2008Q3

REPORT INFORMATION
  Report Type: 
  Country: None (occurrence: None)
  Receive Date: 20080702
  Receipt Date: 20080616
  Transmission Date: 20090109
  Serious: Yes (Hospitalization)
  Sender: FDA-Public Use
  Company Number: 2008AL007365

PATIENT
  Sex: Female

DRUGS (1)
  1. DIGOXIN [Suspect]
     Dosage: 0.25MG

REACTIONS (7)
  - ANOREXIA [None]
  - BLOOD POTASSIUM DECREASED [None]
  - DYSPNOEA [None]
  - FALL [None]
  - INCOHERENT [None]
  - INCONTINENCE [None]
  - INCORRECT DOSE ADMINISTERED [None]
